FAERS Safety Report 15521947 (Version 1)
Quarter: 2018Q4

REPORT INFORMATION
  Report Type: Report from Study
  Country: US (occurrence: US)
  Receive Date: 20181017
  Receipt Date: 20181017
  Transmission Date: 20190205
  Serious: No
  Sender: FDA-Public Use
  Company Number: US-AMGEN-USASL2018119731

PATIENT
  Age: 88 Year
  Sex: Female
  Weight: 67.3 kg

DRUGS (1)
  1. REPATHA [Suspect]
     Active Substance: EVOLOCUMAB
     Indication: HYPERLIPIDAEMIA
     Dosage: 140 MG, Q2WK
     Route: 065

REACTIONS (6)
  - Injection site discolouration [Unknown]
  - Nerve compression [Unknown]
  - Spinal column stenosis [Unknown]
  - Intervertebral disc protrusion [Unknown]
  - Blood glucose increased [Recovered/Resolved]
  - Blood potassium increased [Recovered/Resolved]
